FAERS Safety Report 5058304-8 (Version None)
Quarter: 2006Q2

REPORT INFORMATION
  Report Type: 
  Country: None (occurrence: None)
  Receive Date: 20060627
  Receipt Date: 20060407
  Transmission Date: 20061013
  Serious: Yes (Other)
  Sender: FDA-Public Use
  Company Number: 443748

PATIENT
  Age: 48 Year
  Sex: Female

DRUGS (1)
  1. ROFERON-A [Suspect]
     Indication: HEPATITIS C
     Dosage: OTHER
     Dates: start: 20010615

REACTIONS (4)
  - DEPRESSION [None]
  - FATIGUE [None]
  - FEELING OF DESPAIR [None]
  - NAUSEA [None]
